FAERS Safety Report 8655038 (Version 2)
Quarter: 2012Q4

REPORT INFORMATION
  Report Type: 
  Country: CA (occurrence: CA)
  Receive Date: 20120709
  Receipt Date: 20120828
  Transmission Date: 20130627
  Serious: Yes (Other)
  Sender: FDA-Public Use
  Company Number: CA-BAYER-2012-067285

PATIENT
  Age: 31 Year
  Sex: Female
  Weight: 133 kg

DRUGS (1)
  1. MIRENA [Suspect]
     Indication: CONTRACEPTION
     Dosage: UNK
     Route: 015
     Dates: start: 20110926, end: 20111108

REACTIONS (5)
  - Erythema nodosum [Recovered/Resolved]
  - Inflammatory bowel disease [None]
  - Abdominal pain [None]
  - Mucous stools [None]
  - C-reactive protein increased [None]
